FAERS Safety Report 4547970-9 (Version None)
Quarter: 2004Q4

REPORT INFORMATION
  Report Type: 
  Country: None (occurrence: None)
  Receive Date: 20041220
  Receipt Date: 20041019
  Transmission Date: 20050328
  Serious: Yes (Hospitalization)
  Sender: FDA-Public Use
  Company Number: USA041081612

PATIENT
  Age: 62 Year
  Sex: Male

DRUGS (5)
  1. HUMULIN N [Suspect]
     Dates: start: 20000101, end: 20040901
  2. HUMALOG [Suspect]
     Dosage: 94 U DAY
  3. AVANDIA [Concomitant]
  4. GLUCOPHAGE [Concomitant]
  5. GLUCOTROL (GLIPIZIDE0 [Concomitant]

REACTIONS (7)
  - ABDOMINAL DISTENSION [None]
  - BLOOD GLUCOSE INCREASED [None]
  - CHEST PAIN [None]
  - CONFUSIONAL STATE [None]
  - DYSPNOEA [None]
  - OEDEMA [None]
  - THYROID DISORDER [None]
